FAERS Safety Report 17479226 (Version 2)
Quarter: 2020Q1

REPORT INFORMATION
  Report Type: Report from Study
  Country: CO (occurrence: CO)
  Receive Date: 20200228
  Receipt Date: 20200306
  Transmission Date: 20200409
  Serious: Yes (Other)
  Sender: FDA-Public Use
  Company Number: CO-JNJFOC-20191048022

PATIENT
  Age: 56 Year
  Sex: Female
  Weight: 48 kg

DRUGS (7)
  1. BETAMETHASONE. [Concomitant]
     Active Substance: BETAMETHASONE
  2. STELARA [Suspect]
     Active Substance: USTEKINUMAB
     Dosage: 45 MG/ML
     Route: 058
     Dates: start: 20191102
  3. STELARA [Suspect]
     Active Substance: USTEKINUMAB
     Indication: PSORIASIS
     Route: 058
     Dates: start: 20150703, end: 20190131
  4. STELARA [Suspect]
     Active Substance: USTEKINUMAB
     Route: 058
     Dates: start: 20190527, end: 20190527
  5. STELARA [Suspect]
     Active Substance: USTEKINUMAB
     Dosage: 45 MG/ML
     Route: 058
     Dates: start: 20200201
  6. ACETAMINOPHEN. [Concomitant]
     Active Substance: ACETAMINOPHEN
  7. CLOBETASOL PROPIONATE. [Concomitant]
     Active Substance: CLOBETASOL PROPIONATE

REACTIONS (9)
  - Influenza [Recovering/Resolving]
  - Rash [Not Recovered/Not Resolved]
  - Headache [Recovering/Resolving]
  - Urticaria [Recovering/Resolving]
  - Immunodeficiency [Not Recovered/Not Resolved]
  - Psoriasis [Recovering/Resolving]
  - Product dose omission [Unknown]
  - Fungal infection [Recovering/Resolving]
  - Spinal pain [Recovering/Resolving]

NARRATIVE: CASE EVENT DATE: 20190827
